FAERS Safety Report 15584821 (Version 1)
Quarter: 2018Q4

REPORT INFORMATION
  Report Type: Spontaneous
  Country: ES (occurrence: ES)
  Receive Date: 20181105
  Receipt Date: 20181105
  Transmission Date: 20190205
  Serious: Yes (Hospitalization, Other)
  Sender: FDA-Public Use
  Company Number: ES-APOTEX-2018AP024067

PATIENT
  Age: 2 Month
  Sex: Female

DRUGS (1)
  1. ACETAMINOPHEN. [Suspect]
     Active Substance: ACETAMINOPHEN
     Indication: PRODUCT USED FOR UNKNOWN INDICATION
     Dosage: 48 MG, UNKNOWN
     Route: 065

REACTIONS (8)
  - Toxicity to various agents [Unknown]
  - Renal impairment [Unknown]
  - Hepatotoxicity [Unknown]
  - Prerenal failure [Recovered/Resolved]
  - Pyrexia [Unknown]
  - General physical condition abnormal [Unknown]
  - Weight decreased [Recovered/Resolved]
  - Hepatic function abnormal [Recovered/Resolved]
